FAERS Safety Report 7591112-2 (Version None)
Quarter: 2011Q3

REPORT INFORMATION
  Report Type: 
  Country: None (occurrence: None)
  Receive Date: 20110705
  Receipt Date: 20110630
  Transmission Date: 20111222
  Serious: Yes (Life-Threatening)
  Sender: FDA-Public Use
  Company Number: AU-ASTRAZENECA-2011SE33563

PATIENT
  Age: 79 Year
  Sex: Male

DRUGS (7)
  1. ATROVENT [Concomitant]
     Dates: start: 20090101
  2. PERINDOPRIL [Concomitant]
  3. SYMBICORT [Suspect]
     Indication: ASTHMA
     Dosage: 200/6 MCG 2 PUFFS TWICE A DAY
     Route: 055
  4. PREDNISOLONE [Concomitant]
  5. SYMBICORT [Suspect]
     Indication: CHRONIC OBSTRUCTIVE PULMONARY DISEASE
     Dosage: 200/6 MCG 2 PUFFS TWICE A DAY
     Route: 055
  6. SALBUTAMOL NEBULIZER [Concomitant]
     Dosage: 3 TO 4 HOURLY
     Dates: start: 20090101
  7. VERPAMIL HCL [Concomitant]

REACTIONS (2)
  - PRODUCT QUALITY ISSUE [None]
  - DYSPNOEA [None]
